FAERS Safety Report 10355198 (Version 2)
Quarter: 2014Q3

REPORT INFORMATION
  Report Type: Spontaneous
  Country: US (occurrence: None)
  Receive Date: 20140729
  Receipt Date: 20140731
  Transmission Date: 20150326
  Serious: No
  Sender: FDA-Public Use
  Company Number: AUR-APL-2014-07932

PATIENT
  Sex: Female
  Weight: 61.2 kg

DRUGS (1)
  1. LEVETIRACETAM. [Suspect]
     Active Substance: LEVETIRACETAM
     Indication: PRODUCT USED FOR UNKNOWN INDICATION
     Dates: start: 2012

REACTIONS (1)
  - Rash [None]

NARRATIVE: CASE EVENT DATE: 2012
